FAERS Safety Report 9844905 (Version 2)
Quarter: 2014Q1

REPORT INFORMATION
  Report Type: Spontaneous
  Country: US (occurrence: US)
  Receive Date: 20140127
  Receipt Date: 20140127
  Transmission Date: 20141002
  Serious: No
  Sender: FDA-Public Use
  Company Number: US-MYLANLABS-2013S1006223

PATIENT
  Age: 33 Year
  Sex: Male
  Weight: 294.84 kg

DRUGS (1)
  1. CETIRIZINE HYDROCHLORIDE TABLETS [Suspect]
     Indication: MULTIPLE ALLERGIES
     Route: 048
     Dates: start: 201208, end: 201208

REACTIONS (2)
  - Drug ineffective [Recovered/Resolved]
  - Multiple allergies [Recovered/Resolved]
